FAERS Safety Report 5340218-7 (Version None)
Quarter: 2007Q2

REPORT INFORMATION
  Report Type: 
  Country: None (occurrence: None)
  Receive Date: 20070405
  Receipt Date: 20061207
  Transmission Date: 20071010
  Serious: No
  Sender: FDA-Public Use
  Company Number: US200612001154

PATIENT
  Age: 58 Year
  Sex: Female

DRUGS (5)
  1. CYMBALTA [Suspect]
     Indication: FIBROMYALGIA
     Dosage: 60 MG, DAILY (1/D), ORAL
     Route: 048
     Dates: start: 20061026, end: 20061026
  2. FORTEO [Concomitant]
  3. HYDROCHLOROTHIAZIDE [Concomitant]
  4. CARTIA XT [Concomitant]
  5. MULTI-VITAMINS [Concomitant]

REACTIONS (4)
  - INSOMNIA [None]
  - PSYCHOMOTOR HYPERACTIVITY [None]
  - RESTLESS LEGS SYNDROME [None]
  - RESTLESSNESS [None]
